FAERS Safety Report 9993248 (Version 1)
Quarter: 2014Q1

REPORT INFORMATION
  Report Type: Spontaneous
  Country: US (occurrence: US)
  Receive Date: 20140310
  Receipt Date: 20140310
  Transmission Date: 20141002
  Serious: Yes (Other)
  Sender: FDA-Public Use
  Company Number: US-PFIZER INC-2014065108

PATIENT
  Age: 66 Year
  Sex: Female
  Weight: 90.25 kg

DRUGS (13)
  1. LYRICA [Suspect]
     Dosage: 150 MG, 3X/DAY
     Route: 048
     Dates: start: 20131119
  2. PREMPRO [Suspect]
     Dosage: 0.625MG/ 2.5MG, QD
     Route: 048
     Dates: start: 20130910
  3. ASPIRIN [Concomitant]
     Dosage: 81 MG, EVERY DAY
     Route: 048
     Dates: start: 20110714
  4. NEXIUM [Concomitant]
     Dosage: 40 MG, 1X/DAY
     Route: 048
     Dates: start: 20121030
  5. OXYGEN [Concomitant]
     Dosage: 2 LPM NOCTURNAL
     Route: 045
     Dates: start: 20130603
  6. NITROGLYCERIN [Concomitant]
     Indication: PAIN
     Dosage: 0.4 MG, PRN USE
     Route: 060
     Dates: start: 20130806
  7. PRAVASTATIN [Concomitant]
     Dosage: 20 MG, EVERY DAY
     Route: 048
     Dates: start: 20130826
  8. VAGIFEM [Concomitant]
     Dosage: 10 UG, 2 TIMES EVERY WEEK
     Route: 067
     Dates: start: 20131015
  9. NORCO [Concomitant]
     Indication: PAIN
     Dosage: 10 MG-325 MG, EVERY 6 HOURS AS NEEDED
     Dates: start: 20131015
  10. CELEXA [Concomitant]
     Dosage: 20 MG, EVERY DAY
     Route: 048
     Dates: start: 20131220
  11. SOMA [Concomitant]
     Dosage: 350 MG, 3 TIMES EVERY DAY AND AT BEDTIME
     Route: 048
     Dates: start: 20131231
  12. ALPRAZOLAM [Concomitant]
     Indication: ANXIETY
     Dosage: 1 DF, QID PRN
     Route: 048
     Dates: start: 20131231
  13. LEVOTHYROXINE [Concomitant]
     Dosage: 50 UG, EVERY DAY
     Route: 048
     Dates: start: 20131231

REACTIONS (13)
  - Angina pectoris [Unknown]
  - Osteoarthritis [Unknown]
  - Intervertebral disc disorder [Unknown]
  - Arthralgia [Unknown]
  - Anxiety [Unknown]
  - Hyperlipidaemia [Unknown]
  - Hypothyroidism [Unknown]
  - Depression [Unknown]
  - Gastrooesophageal reflux disease [Unknown]
  - Menopausal disorder [Unknown]
  - Menopausal symptoms [Unknown]
  - Spinal pain [Unknown]
  - Chest pain [Unknown]
